FAERS Safety Report 8304443-5 (Version None)
Quarter: 2012Q2

REPORT INFORMATION
  Report Type: 
  Country: None (occurrence: None)
  Receive Date: 20120423
  Receipt Date: 20120411
  Transmission Date: 20120825
  Serious: Yes (Other)
  Sender: FDA-Public Use
  Company Number: US-CELGENEUS-163-21880-12041485

PATIENT
  Age: 72 Year
  Sex: Female
  Weight: 69.9 kg

DRUGS (3)
  1. REVLIMID [Suspect]
     Indication: MULTIPLE MYELOMA
     Dosage: 25 MILLIGRAM
     Route: 048
     Dates: start: 20050501
  2. DEXAMETHASONE [Concomitant]
     Route: 065
     Dates: start: 20050501, end: 20060801
  3. REVLIMID [Suspect]
     Dosage: 10 MILLIGRAM
     Route: 048
     Dates: end: 20060801

REACTIONS (2)
  - CARDIOVASCULAR DISORDER [None]
  - DIABETES MELLITUS [None]
